FAERS Safety Report 9606647 (Version 2)
Quarter: 2013Q4

REPORT INFORMATION
  Report Type: Spontaneous
  Country: US (occurrence: US)
  Receive Date: 20131008
  Receipt Date: 20131008
  Transmission Date: 20140711
  Serious: No
  Sender: FDA-Public Use
  Company Number: US-AMGEN-USASP2013052448

PATIENT
  Age: 78 Year
  Sex: Female
  Weight: 44.9 kg

DRUGS (7)
  1. PROLIA [Suspect]
     Indication: OSTEOPOROSIS POSTMENOPAUSAL
     Dosage: 60 MG, Q6MO
     Route: 058
     Dates: start: 20130514, end: 20130708
  2. LISINOPRIL HCTZ [Concomitant]
     Indication: HYPERTENSION
     Dosage: 20/12.5 MG 1 TABLET BY MOUTH EVERY MORNING
     Route: 048
     Dates: start: 20110221
  3. ASPIRIN E.C [Concomitant]
     Dosage: 81 MG, QD
     Route: 048
     Dates: start: 20101221
  4. CALTRATE + D PLUS [Concomitant]
     Dosage: UNK UNK, QD
     Route: 048
  5. GABAPENTIN [Concomitant]
     Dosage: 300 MG, QD
     Route: 048
  6. CHOLESTYRAMINE [Concomitant]
     Dosage: 4 G, QD
     Route: 048
  7. HYDROCORTISONE [Concomitant]

REACTIONS (5)
  - Arthralgia [Recovered/Resolved]
  - Musculoskeletal stiffness [Unknown]
  - Back pain [Unknown]
  - Drug hypersensitivity [Unknown]
  - Pain in extremity [Unknown]
